FAERS Safety Report 7704062-5 (Version None)
Quarter: 2011Q3

REPORT INFORMATION
  Report Type: 
  Country: None (occurrence: None)
  Receive Date: 20110818
  Receipt Date: 20110804
  Transmission Date: 20111222
  Serious: Yes (Other)
  Sender: FDA-Public Use
  Company Number: 2011-310

PATIENT
  Age: 56 Year
  Sex: Male
  Weight: 80 kg

DRUGS (3)
  1. PRIALT [Suspect]
     Dosage: 0.075 UG, ONCE/HOUR, INTRATHECAL
     Route: 037
     Dates: start: 20110601
  2. LYRICA [Concomitant]
  3. IBUPROFEN [Concomitant]

REACTIONS (1)
  - VISUAL ACUITY REDUCED [None]
